FAERS Safety Report 17796148 (Version 1)
Quarter: 2020Q2

REPORT INFORMATION
  Report Type: Spontaneous
  Country: BR (occurrence: BR)
  Receive Date: 20200517
  Receipt Date: 20200517
  Transmission Date: 20200714
  Serious: Yes (Hospitalization, Other)
  Sender: FDA-Public Use
  Company Number: NVSC2020BR127601

PATIENT
  Age: 7 Year
  Sex: Male

DRUGS (1)
  1. CIPROFLOXACIN. [Suspect]
     Active Substance: CIPROFLOXACIN
     Indication: CYSTIC FIBROSIS RESPIRATORY INFECTION SUPPRESSION
     Dosage: 40 MG, Q12H
     Route: 048

REACTIONS (4)
  - Respiratory distress [Unknown]
  - Staphylococcal infection [Unknown]
  - Treatment failure [Unknown]
  - Drug resistance [Unknown]
